FAERS Safety Report 23734152 (Version 1)
Quarter: 2024Q2

REPORT INFORMATION
  Report Type: Report from Study
  Country: DE (occurrence: DE)
  Receive Date: 20240412
  Receipt Date: 20240412
  Transmission Date: 20240716
  Serious: Yes (Hospitalization)
  Sender: FDA-Public Use
  Company Number: DE-ABBVIE-5713454

PATIENT
  Age: 69 Year
  Sex: Female

DRUGS (3)
  1. RINVOQ [Suspect]
     Active Substance: UPADACITINIB
     Indication: Rheumatoid arthritis
     Route: 048
     Dates: start: 202007, end: 202008
  2. XELJANZ [Concomitant]
     Active Substance: TOFACITINIB CITRATE
     Indication: Product used for unknown indication
     Dates: start: 201806, end: 202003
  3. XELJANZ [Concomitant]
     Active Substance: TOFACITINIB CITRATE
     Indication: Product used for unknown indication
     Dates: start: 202105, end: 202109

REACTIONS (7)
  - Atrial septal defect [Unknown]
  - Cerebral infarction [Recovered/Resolved]
  - Macroangiopathy [Recovered/Resolved]
  - Atheroembolism [Recovered/Resolved]
  - Cardiac aneurysm [Recovered/Resolved]
  - Fibrin D dimer increased [Unknown]
  - Coronary artery embolism [Recovered/Resolved]

NARRATIVE: CASE EVENT DATE: 20230822
